FAERS Safety Report 5313631-1 (Version None)
Quarter: 2007Q2

REPORT INFORMATION
  Report Type: 
  Country: None (occurrence: None)
  Receive Date: 20070425
  Receipt Date: 20070413
  Transmission Date: 20071010
  Serious: Yes (Other)
  Sender: FDA-Public Use
  Company Number: 16297

PATIENT
  Age: 50 Year
  Sex: Male

DRUGS (4)
  1. DEHYDRATED ALCOHOL [Suspect]
     Indication: HYPERTROPHIC CARDIOMYOPATHY
     Dosage: 1.5 ML ONCE INJ
  2. DEHYDRATED ALCOHOL [Suspect]
     Indication: HYPERTROPHIC CARDIOMYOPATHY
     Dosage: 0.8 ML ONCE INJ
  3. DEHYDRATED ALCOHOL [Suspect]
     Indication: HYPERTROPHIC CARDIOMYOPATHY
     Dosage: 1 ML INJ
  4. DEFINITY [Concomitant]

REACTIONS (3)
  - CARDIAC PROCEDURE COMPLICATION [None]
  - CATHETER RELATED COMPLICATION [None]
  - MYOCARDIAL INFARCTION [None]
